FAERS Safety Report 9552625 (Version 1)
Quarter: 2013Q2

REPORT INFORMATION
  Report Type: Spontaneous
  Country: US (occurrence: None)
  Receive Date: 20130524
  Receipt Date: 20130524
  Transmission Date: 20140414
  Serious: No
  Sender: FDA-Public Use
  Company Number: PHEH2013US004754

PATIENT
  Sex: Male
  Weight: 83.9 kg

DRUGS (5)
  1. GILENYA [Suspect]
     Indication: MULTIPLE SCLEROSIS
     Route: 048
  2. AMPYRA (FAMPRIDINE) TABLET, 10MG [Concomitant]
  3. VITAMIN D (ERGOCALCIFEROL) [Concomitant]
  4. AMLODIPINE (AMLODIPINE) [Concomitant]
  5. MULTIVITAMINS (ASCORBIC ACID, ERGOCALCIFEROL, FOLIC ACID, NICOTINAMIDE, PANTHENOL, RETINOL, RIBOFLAVIN, THIAMINE HYDROCHLORIDE) [Concomitant]

REACTIONS (3)
  - Cognitive disorder [None]
  - Fatigue [None]
  - Vision blurred [None]
